FAERS Safety Report 6308806-9 (Version None)
Quarter: 2009Q3

REPORT INFORMATION
  Report Type: 
  Country: None (occurrence: None)
  Receive Date: 20090813
  Receipt Date: 20081015
  Transmission Date: 20100115
  Serious: Yes (Hospitalization)
  Sender: FDA-Public Use
  Company Number: US-ALLERGAN-0812080US

PATIENT
  Age: 75 Year
  Sex: Male

DRUGS (5)
  1. COMBIGAN [Suspect]
     Indication: NORMAL TENSION GLAUCOMA
     Dosage: 1 GTT, QD
     Route: 047
     Dates: start: 20080415, end: 20080916
  2. NIFEDICAL [Concomitant]
     Indication: BLOOD PRESSURE
  3. LOVASTATIN [Concomitant]
     Indication: BLOOD CHOLESTEROL
  4. OMEPRAZOLE [Concomitant]
     Dosage: 20 MG, UNK
     Route: 048
  5. NAPROXEN [Concomitant]

REACTIONS (1)
  - PNEUMONIA [None]
